FAERS Safety Report 20092578 (Version 3)
Quarter: 2022Q2

REPORT INFORMATION
  Report Type: Spontaneous
  Country: JP (occurrence: JP)
  Receive Date: 20211119
  Receipt Date: 20220405
  Transmission Date: 20220721
  Serious: Yes (Death, Hospitalization, Other)
  Sender: FDA-Public Use
  Company Number: JP-CHUGAI-2021027983

PATIENT
  Age: 62 Year
  Sex: Female
  Weight: 61.9 kg

DRUGS (7)
  1. TECENTRIQ [Suspect]
     Active Substance: ATEZOLIZUMAB
     Indication: Small cell lung cancer
     Route: 041
     Dates: start: 20200629, end: 20200720
  2. METHOTREXATE [Suspect]
     Active Substance: METHOTREXATE
     Indication: Product used for unknown indication
     Dosage: 4 MILLIGRAM, BIW
     Route: 048
     Dates: start: 20190318, end: 20210326
  3. DENOSUMAB [Suspect]
     Active Substance: DENOSUMAB
     Indication: Metastases to spine
     Route: 058
     Dates: start: 20210303, end: 20210303
  4. ETOPOSIDE [Concomitant]
     Active Substance: ETOPOSIDE
     Indication: Small cell carcinoma
     Route: 041
  5. CARBOPLATIN [Concomitant]
     Active Substance: CARBOPLATIN
     Indication: Small cell lung cancer
     Route: 041
  6. MONTELUKAST OD [Concomitant]
     Dosage: UNK
     Route: 048
     Dates: start: 20200711, end: 20211011
  7. FOLIC ACID [Concomitant]
     Active Substance: FOLIC ACID
     Dosage: UNK
     Route: 065
     Dates: start: 20190318, end: 20211005

REACTIONS (5)
  - Interstitial lung disease [Recovered/Resolved]
  - Disease progression [Fatal]
  - Metastases to central nervous system [Unknown]
  - Metastases to spine [Unknown]
  - Dehydration [Recovered/Resolved]

NARRATIVE: CASE EVENT DATE: 20200810
